FAERS Safety Report 8386268-8 (Version None)
Quarter: 2012Q2

REPORT INFORMATION
  Report Type: 
  Country: None (occurrence: None)
  Receive Date: 20120525
  Receipt Date: 20120521
  Transmission Date: 20120825
  Serious: Yes (Hospitalization, Other)
  Sender: FDA-Public Use
  Company Number: US-PFIZER INC-2012123271

PATIENT
  Sex: Female
  Weight: 74.83 kg

DRUGS (5)
  1. ADVIL [Suspect]
     Dosage: 500 MG, 1X/DAY
     Route: 048
     Dates: start: 20110101, end: 20110101
  2. PREDNISONE TAB [Suspect]
     Indication: EPISTAXIS
  3. PREDNISONE TAB [Suspect]
     Indication: MOUTH HAEMORRHAGE
  4. PREDNISONE TAB [Suspect]
     Indication: TRAUMATIC HAEMORRHAGE
     Dosage: 500 MG, 2X/DAY
     Route: 048
     Dates: start: 20110820
  5. PREDNISONE TAB [Suspect]
     Indication: EYE HAEMORRHAGE

REACTIONS (9)
  - ASTHENIA [None]
  - BLOOD PRESSURE FLUCTUATION [None]
  - TRAUMATIC HAEMORRHAGE [None]
  - EPISTAXIS [None]
  - BLOOD BLISTER [None]
  - FATIGUE [None]
  - IMPAIRED WORK ABILITY [None]
  - MOUTH HAEMORRHAGE [None]
  - EYE HAEMORRHAGE [None]
